FAERS Safety Report 18086627 (Version 1)
Quarter: 2020Q3

REPORT INFORMATION
  Report Type: Spontaneous
  Country: US (occurrence: US)
  Receive Date: 20200723
  Receipt Date: 20200723
  Transmission Date: 20201103
  Serious: Yes (Other)
  Sender: FDA-Public Use
  Company Number: None

PATIENT
  Age: 1 Year
  Sex: Male
  Weight: 11.34 kg

DRUGS (1)
  1. ZARBEE^S NATURALS BABY GUM MASSAGE GEL [Suspect]
     Active Substance: HERBALS
     Indication: TEETHING
     Route: 011
     Dates: start: 20200705, end: 20200705

REACTIONS (2)
  - Seizure [None]
  - Body temperature increased [None]

NARRATIVE: CASE EVENT DATE: 20200705
